FAERS Safety Report 9994911 (Version 1)
Quarter: 2014Q1

REPORT INFORMATION
  Report Type: Spontaneous
  Country: US (occurrence: None)
  Receive Date: 20140214
  Receipt Date: 20140214
  Transmission Date: 20141002
  Serious: Yes (Other)
  Sender: FDA-Public Use
  Company Number: 1000045484

PATIENT
  Sex: Female

DRUGS (1)
  1. BYSTOLIC (NEBIVOLOL HYDROCHLORIDE) [Suspect]

REACTIONS (2)
  - Syncope [None]
  - Head injury [None]
